FAERS Safety Report 5733633-0 (Version None)
Quarter: 2008Q2

REPORT INFORMATION
  Report Type: 
  Country: None (occurrence: None)
  Receive Date: 20080509
  Receipt Date: 20080320
  Transmission Date: 20081010
  Serious: No
  Sender: FDA-Public Use
  Company Number: A0698158A

PATIENT
  Age: 11 Month
  Sex: Female
  Weight: 99.1 kg

DRUGS (3)
  1. ALTABAX [Suspect]
     Indication: PERITONITIS BACTERIAL
     Dosage: 1APP SINGLE DOSE
     Route: 061
     Dates: start: 20071207, end: 20071209
  2. PULMICORT [Concomitant]
  3. SINGULAIR [Concomitant]

REACTIONS (2)
  - CRYING [None]
  - IRRITABILITY [None]
